FAERS Safety Report 4529134-8 (Version None)
Quarter: 2004Q4

REPORT INFORMATION
  Report Type: 
  Country: None (occurrence: None)
  Receive Date: 20041214
  Receipt Date: 20041202
  Transmission Date: 20050328
  Serious: Yes (Death, Other)
  Sender: FDA-Public Use
  Company Number: 2004-00239

PATIENT
  Age: 60 Year
  Sex: Male

DRUGS (1)
  1. VELCADE [Suspect]
     Indication: MULTIPLE MYELOMA
     Dosage: 2.60 MG, INTRAVENOUS
     Route: 042
     Dates: start: 20040419

REACTIONS (4)
  - AMYLOIDOSIS [None]
  - CARDIAC AMYLOIDOSIS [None]
  - PNEUMONIA [None]
  - PULMONARY FUNCTION TEST DECREASED [None]
